FAERS Safety Report 7473549-5 (Version None)
Quarter: 2011Q2

REPORT INFORMATION
  Report Type: 
  Country: None (occurrence: None)
  Receive Date: 20110511
  Receipt Date: 20110504
  Transmission Date: 20111010
  Serious: Yes (Hospitalization, Disabling)
  Sender: FDA-Public Use
  Company Number: US-MERCK-0610USA13976

PATIENT
  Age: 71 Year
  Sex: Female
  Weight: 55 kg

DRUGS (5)
  1. FOSAMAX [Suspect]
     Indication: OSTEOPOROSIS
     Route: 048
     Dates: start: 20020128, end: 20040603
  2. FOSAMAX [Suspect]
     Route: 048
     Dates: start: 19970501, end: 20011204
  3. COZAAR [Concomitant]
     Indication: BLOOD PRESSURE INCREASED
     Route: 048
     Dates: start: 20000201
  4. SINGULAIR [Concomitant]
     Indication: HYPERSENSITIVITY
     Route: 048
     Dates: start: 20010401, end: 20040501
  5. FOSAMAX [Suspect]
     Route: 048

REACTIONS (47)
  - MITRAL VALVE DISEASE [None]
  - ANXIETY [None]
  - FISTULA [None]
  - VARICOSE VEIN [None]
  - TONGUE ULCERATION [None]
  - HAEMORRHOIDS [None]
  - HAEMORRHOIDAL HAEMORRHAGE [None]
  - INFLUENZA [None]
  - DIZZINESS [None]
  - CYST [None]
  - DIVERTICULUM [None]
  - PHLEBITIS SUPERFICIAL [None]
  - OSTEOPENIA [None]
  - LIP SWELLING [None]
  - FURUNCLE [None]
  - NASOPHARYNGITIS [None]
  - FEMUR FRACTURE [None]
  - ROAD TRAFFIC ACCIDENT [None]
  - TONGUE HAEMORRHAGE [None]
  - THROMBOPHLEBITIS SUPERFICIAL [None]
  - FALL [None]
  - HYPOKALAEMIA [None]
  - BONE LOSS [None]
  - THROMBOSED VARICOSE VEIN [None]
  - PALPITATIONS [None]
  - URINARY TRACT INFECTION [None]
  - OEDEMA PERIPHERAL [None]
  - HYPERKERATOSIS [None]
  - CELLULITIS [None]
  - BLOOD CHOLESTEROL INCREASED [None]
  - OSTEOARTHRITIS [None]
  - FATIGUE [None]
  - ASTHMA [None]
  - LIGAMENT SPRAIN [None]
  - LIMB DISCOMFORT [None]
  - DENTAL FISTULA [None]
  - PERIODONTITIS [None]
  - PERIODONTAL DISEASE [None]
  - AMNESIA [None]
  - HYPERSOMNIA [None]
  - CONSTIPATION [None]
  - OSTEONECROSIS OF JAW [None]
  - MEDICAL DEVICE COMPLICATION [None]
  - DRY MOUTH [None]
  - UPPER RESPIRATORY TRACT INFECTION [None]
  - ABNORMAL LOSS OF WEIGHT [None]
  - TOOTH FRACTURE [None]
